FAERS Safety Report 4342936-6 (Version None)
Quarter: 2004Q2

REPORT INFORMATION
  Report Type: 
  Country: None (occurrence: None)
  Receive Date: 20040416
  Receipt Date: 20040331
  Transmission Date: 20050107
  Serious: Yes (Other)
  Sender: FDA-Public Use
  Company Number: EM2004-0181

PATIENT
  Age: 3 Year
  Sex: Male

DRUGS (12)
  1. TOBI [Suspect]
     Indication: CYSTIC FIBROSIS
     Dosage: 300M MG, BID, INHALATION
     Route: 055
     Dates: start: 20040319
  2. TOBRAMYCIN [Suspect]
     Indication: CYSTIC FIBROSIS
     Dosage: 160 MG, QD, INTRAVENOUS
     Route: 042
     Dates: start: 20040305, end: 20040318
  3. PHYTONADIONE [Concomitant]
  4. PENTA-VITE CHILDRENS VITAMINS (MINERALS NO, VITAMINS NOS) [Concomitant]
  5. COTAZYM-S (PROTEASE, LIPASE, AMYLASE) [Concomitant]
  6. SALT TABLETS (SODIUM CHLORIDE) [Concomitant]
  7. GASTROLYTE (SODIUM LACTATE, SODIUM CHLORIDE, POTASSIUM CHLORIDE, GLUCO [Concomitant]
  8. LACTULOSE [Concomitant]
  9. PANCRELIPASE (PANCRELIPASE) [Concomitant]
  10. TOBRAMYCIN [Concomitant]
  11. TIMENTIN (CLAVULANIC ACID) [Concomitant]
  12. HEPARIN LOCK FLUSH (HEPARIN SODIUM) [Concomitant]

REACTIONS (2)
  - DRUG LEVEL INCREASED [None]
  - MEDICATION ERROR [None]
